FAERS Safety Report 12110676 (Version 1)
Quarter: 2016Q1

REPORT INFORMATION
  Report Type: Spontaneous
  Country: US (occurrence: US)
  Receive Date: 20160224
  Receipt Date: 20160224
  Transmission Date: 20160526
  Serious: No
  Sender: FDA-Public Use
  Company Number: US-JAZZ-2015-US-001641

PATIENT
  Sex: Female

DRUGS (5)
  1. PRIALT [Suspect]
     Active Substance: ZICONOTIDE ACETATE
     Dosage: UNK ?G, QH
     Route: 037
  2. PRIALT [Suspect]
     Active Substance: ZICONOTIDE ACETATE
     Dosage: UNK ?G, QH
     Route: 037
  3. CLONIDINE. [Suspect]
     Active Substance: CLONIDINE
  4. BACLOFEN. [Suspect]
     Active Substance: BACLOFEN
  5. FENTANYL. [Suspect]
     Active Substance: FENTANYL

REACTIONS (2)
  - Hallucination, auditory [Recovered/Resolved]
  - Decreased appetite [Unknown]
